FAERS Safety Report 5905160-9 (Version None)
Quarter: 2008Q4

REPORT INFORMATION
  Report Type: 
  Country: None (occurrence: None)
  Receive Date: 20081001
  Receipt Date: 20080929
  Transmission Date: 20090506
  Serious: Yes (Hospitalization)
  Sender: FDA-Public Use
  Company Number: GR-ABBOTT-08P-066-0476416-00

PATIENT
  Age: 69 Year
  Sex: Male
  Weight: 75 kg

DRUGS (14)
  1. ZEMPLAR [Suspect]
     Indication: HYPERPARATHYROIDISM SECONDARY
     Route: 042
     Dates: start: 20070721
  2. CLOPIDOGREL [Concomitant]
     Indication: DRUG USE FOR UNKNOWN INDICATION
     Route: 048
  3. RABEPRAZOLE SODIUM [Concomitant]
     Indication: DRUG USE FOR UNKNOWN INDICATION
     Route: 048
  4. FOLIC ACID [Concomitant]
     Indication: DRUG USE FOR UNKNOWN INDICATION
     Route: 048
  5. CARVEDILOL [Concomitant]
     Indication: DRUG USE FOR UNKNOWN INDICATION
     Route: 048
  6. FORSENOL TABS 750 MG [Concomitant]
     Indication: DRUG USE FOR UNKNOWN INDICATION
  7. SEVELAMER [Concomitant]
     Indication: DRUG USE FOR UNKNOWN INDICATION
     Dosage: 800 MG
     Route: 048
  8. LEVOCARNITINE [Concomitant]
     Indication: DRUG USE FOR UNKNOWN INDICATION
     Dosage: 3 GR IN HEMODIALYSIS
     Route: 042
  9. LEVOCARNITINE [Concomitant]
     Dosage: IN HEMODIALYSIS
     Route: 042
  10. AZELAIC ACID [Concomitant]
     Indication: DRUG USE FOR UNKNOWN INDICATION
     Dosage: 3000+1000 IN HEMODIALYSIS
     Route: 042
  11. EPOETIN BETA [Concomitant]
     Indication: DRUG USE FOR UNKNOWN INDICATION
     Dosage: IN HEMODIALYSIS
     Route: 042
  12. SACCHARATED IRON OXIDE [Concomitant]
     Indication: DRUG USE FOR UNKNOWN INDICATION
     Dosage: IN HEMODIALYSIS
     Route: 042
  13. NEUROBION [Concomitant]
     Indication: DRUG USE FOR UNKNOWN INDICATION
     Dosage: IN HEMODIALYSIS
     Route: 042
  14. TETRACYCLINE HYDROCHLORIDE [Concomitant]
     Indication: DRUG USE FOR UNKNOWN INDICATION
     Dosage: IN HEMODIALYSIS
     Route: 042

REACTIONS (2)
  - PYREXIA [None]
  - RESPIRATORY TRACT INFECTION [None]
